FAERS Safety Report 9925600 (Version 2)
Quarter: 2014Q2

REPORT INFORMATION
  Report Type: Spontaneous
  Country: US (occurrence: US)
  Receive Date: 20140226
  Receipt Date: 20140522
  Transmission Date: 20141212
  Serious: Yes (Other)
  Sender: FDA-Public Use
  Company Number: US-PFIZER INC-2014054876

PATIENT
  Age: 70 Year
  Sex: Female
  Weight: 104 kg

DRUGS (6)
  1. XELJANZ [Suspect]
     Dosage: 5 MG, 2X/DAY
     Route: 048
     Dates: start: 2013
  2. PROTONIX [Concomitant]
     Dosage: UNK
  3. VITAMIN B12 [Concomitant]
     Dosage: UNK
  4. CENTRUM [Concomitant]
     Dosage: UNK
  5. ASPIRIN [Concomitant]
     Dosage: 81 MG, UNK
  6. OS-CAL [Concomitant]
     Dosage: UNK

REACTIONS (2)
  - Cerebrovascular accident [Unknown]
  - Acne [Not Recovered/Not Resolved]
